FAERS Safety Report 4666098-0 (Version None)
Quarter: 2005Q2

REPORT INFORMATION
  Report Type: 
  Country: None (occurrence: None)
  Receive Date: 20050519
  Receipt Date: 20050502
  Transmission Date: 20051028
  Serious: Yes (Death)
  Sender: FDA-Public Use
  Company Number: MY-GLAXOSMITHKLINE-B0379916A

PATIENT
  Age: 55 Year
  Sex: Male

DRUGS (1)
  1. ZINNAT [Suspect]
     Indication: TONSILLITIS
     Dosage: 250MG THREE TIMES PER DAY
     Route: 048
     Dates: start: 20050430

REACTIONS (9)
  - ANAPHYLACTIC REACTION [None]
  - CARDIOPULMONARY FAILURE [None]
  - DEATH [None]
  - DYSPNOEA [None]
  - ILL-DEFINED DISORDER [None]
  - PRURITUS [None]
  - SELF-MEDICATION [None]
  - SWELLING [None]
  - VENTRICULAR FIBRILLATION [None]
